FAERS Safety Report 7768670-8 (Version None)
Quarter: 2011Q3

REPORT INFORMATION
  Report Type: 
  Country: None (occurrence: None)
  Receive Date: 20110922
  Receipt Date: 20110711
  Transmission Date: 20111222
  Serious: No
  Sender: FDA-Public Use
  Company Number: US-ASTRAZENECA-2009SE25706

PATIENT
  Age: 54 Year
  Sex: Male
  Weight: 99.8 kg

DRUGS (20)
  1. SEROQUEL [Suspect]
     Route: 048
     Dates: start: 20090501
  2. SEROQUEL [Suspect]
     Route: 048
     Dates: start: 20090501
  3. SEROQUEL [Suspect]
     Dosage: REDUCED DOESE TO HALF THEN DISCONTINUDE
     Route: 048
  4. SEROQUEL [Suspect]
     Route: 048
  5. SEROQUEL [Suspect]
     Route: 048
     Dates: end: 20100101
  6. SEROQUEL [Suspect]
     Route: 048
  7. SEROQUEL [Suspect]
     Route: 048
  8. CYMBALTA [Concomitant]
  9. SEROQUEL [Suspect]
     Route: 048
  10. PRILOSEC [Concomitant]
  11. SEROQUEL [Suspect]
     Dosage: REDUCED DOESE TO HALF THEN DISCONTINUDE
     Route: 048
  12. SEROQUEL [Suspect]
     Route: 048
  13. SEROQUEL [Suspect]
     Route: 048
     Dates: end: 20100101
  14. SEROQUEL [Suspect]
     Route: 048
  15. SEROQUEL [Suspect]
     Route: 048
  16. SEROQUEL [Suspect]
     Indication: ANXIETY
     Route: 048
     Dates: start: 20090501
  17. SEROQUEL [Suspect]
     Indication: PHOBIA
     Route: 048
     Dates: start: 20090501
  18. SEROQUEL [Suspect]
     Route: 048
  19. FOLIC ACID [Concomitant]
  20. PERCOCET [Concomitant]

REACTIONS (13)
  - DYSARTHRIA [None]
  - INCORRECT DRUG DOSAGE FORM ADMINISTERED [None]
  - ANXIETY [None]
  - DEPRESSION [None]
  - EMOTIONAL DISORDER [None]
  - DRUG DOSE OMISSION [None]
  - DYSPHONIA [None]
  - TREMOR [None]
  - INSOMNIA [None]
  - SEXUAL DYSFUNCTION [None]
  - WEIGHT INCREASED [None]
  - FATIGUE [None]
  - FRUSTRATION [None]
